FAERS Safety Report 20069167 (Version 2)
Quarter: 2021Q4

REPORT INFORMATION
  Report Type: Spontaneous
  Country: US (occurrence: US)
  Receive Date: 20211115
  Receipt Date: 20211221
  Transmission Date: 20220303
  Serious: No
  Sender: FDA-Public Use
  Company Number: US-JNJFOC-20211116333

PATIENT
  Age: 59 Year
  Sex: Female

DRUGS (1)
  1. MENS ROGAINE EXTRA STRENGTH [Suspect]
     Active Substance: MINOXIDIL
     Indication: Alopecia
     Dosage: DOSE: 2 PUMPS
     Route: 065
     Dates: start: 20210831

REACTIONS (3)
  - Product use issue [Unknown]
  - Off label use [Unknown]
  - Product container issue [Unknown]

NARRATIVE: CASE EVENT DATE: 20210831
